FAERS Safety Report 13329152 (Version 2)
Quarter: 2018Q3

REPORT INFORMATION
  Report Type: Spontaneous
  Country: NO (occurrence: NO)
  Receive Date: 20170313
  Receipt Date: 20180719
  Transmission Date: 20181010
  Serious: Yes (Death, Other)
  Sender: FDA-Public Use
  Company Number: NO-ORION CORPORATION ORION PHARMA-17_00002234

PATIENT
  Age: 25 Year
  Sex: Female

DRUGS (6)
  1. METHOTREXATE (TRADE NAME UNKNOWN) [Suspect]
     Active Substance: METHOTREXATE
     Indication: ACUTE LYMPHOCYTIC LEUKAEMIA
     Dosage: GIVEN ACCORDING TO NOPHO PROTOCOL; INITIALLY UNTIL SPINAL FLUID IS BLANK
     Route: 037
     Dates: start: 20160628, end: 20160918
  2. PREDNISOLON [Suspect]
     Active Substance: PREDNISOLONE
     Indication: ACUTE LYMPHOCYTIC LEUKAEMIA
     Dosage: GIVEN ACCORDING TO NOPHO PROTOCOL; INITIALLY UNTIL SPINAL FLUID IS BLANK
     Route: 037
     Dates: start: 20160628, end: 201609
  3. PREDNISOLON [Suspect]
     Active Substance: PREDNISOLONE
     Indication: LEUKOCYTOSIS
     Dosage: GIVEN ACCORDING TO NOPHO PROTOCOL
     Route: 037
     Dates: start: 20160919, end: 20161115
  4. METHOTREXATE (TRADE NAME UNKNOWN) [Suspect]
     Active Substance: METHOTREXATE
     Indication: LEUKOCYTOSIS
     Dosage: GIVEN ACCORDING TO NOPHO PROTOCOL
     Route: 037
     Dates: start: 20160919, end: 20161115
  5. CYTARABINE. [Suspect]
     Active Substance: CYTARABINE
     Indication: ACUTE LYMPHOCYTIC LEUKAEMIA
     Dosage: GIVEN ACCORDING TO NOPHO PROTOCOL; INITIALLY UNTIL SPINAL FLUID IS BLANK
     Route: 037
     Dates: start: 20160628, end: 201609
  6. CYTARABINE. [Suspect]
     Active Substance: CYTARABINE
     Indication: LEUKOCYTOSIS
     Dosage: GIVEN ACCORDING TO NOPHO PROTOCOL
     Route: 037
     Dates: start: 20160919, end: 20161115

REACTIONS (5)
  - Neoplasm recurrence [Unknown]
  - Toxicity to various agents [Not Recovered/Not Resolved]
  - Paraplegia [Not Recovered/Not Resolved]
  - Spinal cord disorder [Unknown]
  - Grip strength decreased [Not Recovered/Not Resolved]

NARRATIVE: CASE EVENT DATE: 201608
